FAERS Safety Report 23745588 (Version 1)
Quarter: 2024Q2

REPORT INFORMATION
  Report Type: Spontaneous
  Country: IN (occurrence: IN)
  Receive Date: 20240416
  Receipt Date: 20240416
  Transmission Date: 20240716
  Serious: Yes (Hospitalization, Other)
  Sender: FDA-Public Use
  Company Number: IN-ALKEM LABORATORIES LIMITED-IN-ALKEM-2023-17187

PATIENT
  Age: 28 Year
  Sex: Female
  Weight: 70 kg

DRUGS (3)
  1. ARIPIPRAZOLE [Suspect]
     Active Substance: ARIPIPRAZOLE
     Indication: Schizophrenia
     Dosage: 10 MILLIGRAM, QD
     Route: 048
  2. ARIPIPRAZOLE [Suspect]
     Active Substance: ARIPIPRAZOLE
     Dosage: 20 MILLIGRAM, QD (DOSE INCREASED)
     Route: 048
  3. ESZOPICLONE [Concomitant]
     Active Substance: ESZOPICLONE
     Indication: Schizophrenia
     Dosage: 2 MILLIGRAM, HS
     Route: 048

REACTIONS (2)
  - Oculogyric crisis [Recovered/Resolved]
  - Dystonia [Recovered/Resolved]
